FAERS Safety Report 11929505 (Version 1)
Quarter: 2016Q1

REPORT INFORMATION
  Report Type: Spontaneous
  Country: US (occurrence: US)
  Receive Date: 20160120
  Receipt Date: 20160120
  Transmission Date: 20160526
  Serious: No
  Sender: FDA-Public Use
  Company Number: US-ASTRAZENECA-2016SE02830

PATIENT
  Sex: Male

DRUGS (2)
  1. SYMBICORT [Suspect]
     Active Substance: BUDESONIDE\FORMOTEROL FUMARATE DIHYDRATE
     Indication: LARYNGITIS
     Dosage: UNKNOWN DOSE AND FREQUENCY
     Route: 055
     Dates: end: 20160104
  2. SYMBICORT [Suspect]
     Active Substance: BUDESONIDE\FORMOTEROL FUMARATE DIHYDRATE
     Indication: LUNG INFECTION
     Dosage: UNKNOWN DOSE AND FREQUENCY
     Route: 055
     Dates: end: 20160104

REACTIONS (3)
  - Candida infection [Unknown]
  - Off label use [Unknown]
  - Product use issue [Unknown]
